FAERS Safety Report 17673458 (Version 1)
Quarter: 2020Q2

REPORT INFORMATION
  Report Type: Spontaneous
  Country: CN (occurrence: CN)
  Receive Date: 20200415
  Receipt Date: 20200415
  Transmission Date: 20200713
  Serious: Yes (Other)
  Sender: FDA-Public Use
  Company Number: CN-CELGENEUS-CHN-20200403197

PATIENT
  Age: 57 Year
  Sex: Male
  Weight: 60 kg

DRUGS (1)
  1. ABRAXANE [Suspect]
     Active Substance: PACLITAXEL
     Indication: GASTRIC CANCER
     Dosage: 400 MILLIGRAM
     Route: 041
     Dates: start: 20200222, end: 20200222

REACTIONS (1)
  - Neurotoxicity [Recovering/Resolving]

NARRATIVE: CASE EVENT DATE: 20200225
